FAERS Safety Report 5731845-3 (Version None)
Quarter: 2008Q2

REPORT INFORMATION
  Report Type: 
  Country: None (occurrence: None)
  Receive Date: 20080508
  Receipt Date: 20080430
  Transmission Date: 20081010
  Serious: Yes (Hospitalization)
  Sender: FDA-Public Use
  Company Number: B0517147A

PATIENT
  Age: 56 Year
  Sex: Female
  Weight: 51 kg

DRUGS (6)
  1. LAPATINIB [Suspect]
     Dosage: 1250MG PER DAY
     Route: 048
     Dates: start: 20080322, end: 20080410
  2. XELODA [Suspect]
     Dosage: 2000MGM2 PER DAY
     Route: 048
     Dates: start: 20080321, end: 20080404
  3. WARFARIN SODIUM [Suspect]
     Dosage: 2MG PER DAY
     Route: 048
     Dates: end: 20080412
  4. OXYCODONE HCL [Concomitant]
     Dosage: 80MG TWICE PER DAY
     Route: 048
  5. CODEINE + IBUPROFEN + PARACETAMOL [Concomitant]
     Dosage: 4CAP FOUR TIMES PER DAY
     Route: 048
  6. FENTANYL [Concomitant]
     Route: 050

REACTIONS (2)
  - DRUG INTERACTION [None]
  - VAGINAL HAEMORRHAGE [None]
